FAERS Safety Report 21491142 (Version 1)
Quarter: 2022Q4

REPORT INFORMATION
  Report Type: Report from Study
  Country: US (occurrence: US)
  Receive Date: 20221021
  Receipt Date: 20221021
  Transmission Date: 20230112
  Serious: Yes (Hospitalization)
  Sender: FDA-Public Use
  Company Number: US-MYLANLABS-PV202200029053

PATIENT
  Sex: Female

DRUGS (1)
  1. VENLAFAXINE HCL [Suspect]
     Active Substance: VENLAFAXINE HYDROCHLORIDE
     Indication: Product used for unknown indication
     Dosage: UNK
     Route: 065

REACTIONS (14)
  - Drug ineffective [Unknown]
  - Abnormal behaviour [Unknown]
  - Headache [Unknown]
  - Abdominal discomfort [Unknown]
  - Musculoskeletal stiffness [Unknown]
  - Seborrhoeic dermatitis [Unknown]
  - COVID-19 [Unknown]
  - Vomiting [Unknown]
  - Stress [Unknown]
  - Alopecia [Unknown]
  - Sinusitis [Unknown]
  - Dehydration [Unknown]
  - Illness [Unknown]
  - Nausea [Unknown]
